FAERS Safety Report 7996784 (Version 2)
Quarter: 2012Q4

REPORT INFORMATION
  Report Type: 
  Country: CA (occurrence: CA)
  Receive Date: 20110617
  Receipt Date: 20121111
  Transmission Date: 20130627
  Serious: Yes (Other)
  Sender: FDA-Public Use
  Company Number: PHMT2006CA01340

PATIENT
  Age: 53 Year
  Sex: Female

DRUGS (2)
  1. SANDOSTATIN LAR [Suspect]
     Indication: CARCINOID TUMOUR
     Dosage: 20 mg, QMO
     Dates: start: 20051215
  2. NOVAMILOR [Concomitant]

REACTIONS (14)
  - Lower respiratory tract infection [Unknown]
  - Blood pressure fluctuation [Unknown]
  - Hot flush [Unknown]
  - Dry mouth [Unknown]
  - Oral pain [Unknown]
  - Sensation of heaviness [Unknown]
  - Feeling hot [Unknown]
  - Blood pressure decreased [Unknown]
  - Flushing [Unknown]
  - Nausea [Unknown]
  - Decreased appetite [Unknown]
  - Dizziness [Unknown]
  - Asthenia [Unknown]
  - Fatigue [Not Recovered/Not Resolved]
